FAERS Safety Report 4908365-9 (Version None)
Quarter: 2006Q1

REPORT INFORMATION
  Report Type: 
  Country: None (occurrence: None)
  Receive Date: 20060210
  Receipt Date: 20060131
  Transmission Date: 20060701
  Serious: Yes (Hospitalization)
  Sender: FDA-Public Use
  Company Number: DE-ABBOTT-06P-062-0323841-00

PATIENT
  Age: 66 Year
  Sex: Female

DRUGS (7)
  1. HUMIRA [Suspect]
     Indication: DRUG USE FOR UNKNOWN INDICATION
     Dates: start: 20040601
  2. METHOTREXATE SODIUM [Suspect]
     Indication: DRUG USE FOR UNKNOWN INDICATION
     Dates: start: 20020701
  3. INFLIXIMAB [Concomitant]
     Indication: DRUG USE FOR UNKNOWN INDICATION
     Dates: start: 20020701, end: 20040401
  4. INFLIXIMAB [Concomitant]
  5. INFLIXIMAB [Concomitant]
  6. INFLIXIMAB [Concomitant]
  7. INFLIXIMAB [Concomitant]

REACTIONS (3)
  - CONJUNCTIVAL ULCER [None]
  - EYE INFECTION BACTERIAL [None]
  - HYPOPYON [None]
